FAERS Safety Report 4349204-7 (Version None)
Quarter: 2004Q2

REPORT INFORMATION
  Report Type: 
  Country: None (occurrence: None)
  Receive Date: 20040428
  Receipt Date: 20040330
  Transmission Date: 20050107
  Serious: Yes (Other)
  Sender: FDA-Public Use
  Company Number: JP-ROCHE-363323

PATIENT
  Age: 64 Year
  Sex: Male

DRUGS (9)
  1. ROCALTROL [Suspect]
     Indication: HYPERPARATHYROIDISM SECONDARY
     Route: 042
     Dates: start: 20030429
  2. KETAS [Concomitant]
     Indication: CEREBRAL INFARCTION
     Route: 048
     Dates: start: 20030429, end: 20030701
  3. LORAZEPAM [Concomitant]
     Indication: NEURALGIA
     Route: 048
     Dates: start: 20030429, end: 20030701
  4. GASTER [Concomitant]
     Indication: HEPATITIS
     Dosage: REPORTED AS GASTER D.
     Route: 048
     Dates: start: 20030429, end: 20030701
  5. DIOVAN [Concomitant]
     Indication: HYPERTENSION
     Route: 048
     Dates: start: 20030429, end: 20030701
  6. ADALAT [Concomitant]
     Indication: HYPERTENSION
     Route: 048
     Dates: start: 20030429, end: 20030701
  7. CEROCRAL [Concomitant]
     Indication: CEREBRAL INFARCTION
     Route: 048
     Dates: start: 20030901, end: 20040309
  8. ASPIRIN [Concomitant]
     Indication: CEREBRAL INFARCTION
     Route: 048
     Dates: start: 20030911, end: 20040309
  9. HALCION [Concomitant]
     Indication: INSOMNIA
     Route: 048
     Dates: start: 20030911, end: 20040309

REACTIONS (1)
  - CEREBRAL INFARCTION [None]
